FAERS Safety Report 7232448-4 (Version None)
Quarter: 2011Q1

REPORT INFORMATION
  Report Type: 
  Country: None (occurrence: None)
  Receive Date: 20110119
  Receipt Date: 20110113
  Transmission Date: 20110831
  Serious: No
  Sender: FDA-Public Use
  Company Number: US-PFIZER INC-2010164961

PATIENT
  Age: 50 Year
  Sex: Male
  Weight: 79.365 kg

DRUGS (1)
  1. ADVIL CONGESTION RELIEF [Suspect]
     Indication: NASAL CONGESTION
     Dosage: 1 TABLET EVERY FOUR HOURS
     Route: 048
     Dates: start: 20101120, end: 20101123

REACTIONS (1)
  - DRUG INEFFECTIVE [None]
